FAERS Safety Report 25369348 (Version 1)
Quarter: 2025Q2

REPORT INFORMATION
  Report Type: Spontaneous
  Country: US (occurrence: None)
  Receive Date: 20250527
  Receipt Date: 20250527
  Transmission Date: 20250717
  Serious: Yes (Other)
  Sender: FDA-CTU
  Company Number: None

PATIENT
  Age: 66 Year
  Sex: Female

DRUGS (1)
  1. DULOXETINE [Suspect]
     Active Substance: DULOXETINE
     Dosage: 20 MG DAILY ORAL?
     Route: 048
     Dates: start: 20230527

REACTIONS (2)
  - Nightmare [None]
  - Abnormal dreams [None]

NARRATIVE: CASE EVENT DATE: 20250527
